FAERS Safety Report 20575850 (Version 2)
Quarter: 2022Q3

REPORT INFORMATION
  Report Type: Spontaneous
  Country: DE (occurrence: DE)
  Receive Date: 20220310
  Receipt Date: 20220827
  Transmission Date: 20221027
  Serious: Yes (Hospitalization, Other)
  Sender: FDA-Public Use
  Company Number: DE-NOVARTISPH-NVSC2022DE055657

PATIENT
  Age: 81 Year
  Sex: Male

DRUGS (7)
  1. METHOTREXATE SODIUM [Suspect]
     Active Substance: METHOTREXATE SODIUM
     Indication: Product used for unknown indication
     Dosage: 10 MG, QW
     Route: 065
  2. XELJANZ [Suspect]
     Active Substance: TOFACITINIB CITRATE
     Indication: Product used for unknown indication
     Dosage: 10 MG, QD
     Route: 065
  3. XELJANZ [Suspect]
     Active Substance: TOFACITINIB CITRATE
     Dosage: 10 MG, 1X/DAY
     Route: 065
  4. RAMIPRIL [Concomitant]
     Active Substance: RAMIPRIL
     Indication: Product used for unknown indication
     Dosage: 5 MG, QD (5 MG, 1X/DAY)
     Route: 065
  5. FOLACID [Concomitant]
     Indication: Product used for unknown indication
     Dosage: 5 MG, QW (5 MG, 1X/WEEK)
     Route: 065
  6. XARELTO [Concomitant]
     Active Substance: RIVAROXABAN
     Indication: Product used for unknown indication
     Dosage: 20 MG, QD (20 MG, 1X/DAY)
     Route: 065
  7. METOPROLOL [Concomitant]
     Active Substance: METOPROLOL
     Indication: Product used for unknown indication
     Dosage: 190 MG, QD (95 MG, 2X/DAY)
     Route: 065

REACTIONS (2)
  - Bronchial carcinoma [Recovered/Resolved]
  - Non-small cell lung cancer [Recovered/Resolved]

NARRATIVE: CASE EVENT DATE: 20211101
